FAERS Safety Report 8597885-4 (Version None)
Quarter: 2012Q3

REPORT INFORMATION
  Report Type: 
  Country: None (occurrence: None)
  Receive Date: 20120816
  Receipt Date: 20120814
  Transmission Date: 20120928
  Serious: Yes (Hospitalization, Other)
  Sender: FDA-Public Use
  Company Number: PHHY2009CA47255

PATIENT
  Sex: Female

DRUGS (5)
  1. BENADRYL [Concomitant]
     Dosage: 25 MG, UNK
  2. UREMOL [Concomitant]
  3. PREDNISONE TAB [Concomitant]
  4. SANDOSTATIN LAR [Suspect]
     Indication: METASTATIC CARCINOID TUMOUR
     Dosage: 40 MG, ONCE A MONTH
     Route: 030
     Dates: start: 20061120
  5. ELOCON [Concomitant]

REACTIONS (12)
  - HORDEOLUM [None]
  - ASTHENIA [None]
  - HAEMORRHAGE [None]
  - INJECTION SITE PAIN [None]
  - GASTROINTESTINAL DISORDER [None]
  - GASTRIC VARICES [None]
  - ERYTHEMA [None]
  - BRONCHITIS [None]
  - SINUSITIS [None]
  - MALAISE [None]
  - GASTRIC ULCER [None]
  - COELIAC DISEASE [None]
